FAERS Safety Report 24572840 (Version 1)
Quarter: 2024Q4

REPORT INFORMATION
  Report Type: Spontaneous
  Country: US (occurrence: None)
  Receive Date: 20241101
  Receipt Date: 20241101
  Transmission Date: 20250115
  Serious: Yes (Death)
  Sender: Public
  Company Number: None

PATIENT
  Age: 79 Year
  Sex: Male
  Weight: 81 kg

DRUGS (22)
  1. REVLIMID [Suspect]
     Active Substance: LENALIDOMIDE
     Indication: Plasma cell myeloma
     Dosage: 1 TOT- TOTL DAILY ORAL
     Route: 048
     Dates: start: 20230331, end: 20241024
  2. FOLIC ACID [Concomitant]
     Active Substance: FOLIC ACID
  3. hydrocodone 5 mg-acetaminophen 325 mg tablet [Concomitant]
  4. LOSARTAN [Concomitant]
     Active Substance: LOSARTAN
  5. ACYCLOVIR [Concomitant]
     Active Substance: ACYCLOVIR
  6. duloxetine 20 mg capsule,delayed release [Concomitant]
  7. Montelukast Sodium 10 MG Oral Tablet [Concomitant]
  8. TERAZOSIN 5 MG CAP [Concomitant]
  9. DEXAMETHASONE [Concomitant]
     Active Substance: DEXAMETHASONE
  10. JANUVIA 25 MG TABS [Concomitant]
  11. aspirin 81 mg tablet,delayed release [Concomitant]
  12. Calcium 500 500 mg calcium (1,250 mg) chewable tablet [Concomitant]
  13. HYDRALAZINE [Concomitant]
     Active Substance: HYDRALAZINE HYDROCHLORIDE
  14. mecobalamin (vitamin B12) 1,000 mcg chewable tablet [Concomitant]
  15. Vitamin D3 25 mcg (1,000 unit) capsule [Concomitant]
  16. ATORVASTATIN [Concomitant]
     Active Substance: ATORVASTATIN
  17. EZETIMIBE [Concomitant]
     Active Substance: EZETIMIBE
  18. FUROSEMIDE [Concomitant]
     Active Substance: FUROSEMIDE
  19. glipizide ER 10 mg tablet, extended release 24 hr [Concomitant]
  20. metoprolol succinate ER 50 mg tablet,extended release 24 hr [Concomitant]
  21. nifedipine ER 90 mg tablet,extended release [Concomitant]
  22. VASCEPA [Concomitant]
     Active Substance: ICOSAPENT ETHYL

REACTIONS (1)
  - Death [None]

NARRATIVE: CASE EVENT DATE: 20241024
